FAERS Safety Report 5162319-9 (Version None)
Quarter: 2006Q4

REPORT INFORMATION
  Report Type: 
  Country: None (occurrence: None)
  Receive Date: 20061130
  Receipt Date: 20061120
  Transmission Date: 20070319
  Serious: Yes (Hospitalization, Other)
  Sender: FDA-Public Use
  Company Number: FR-ABBOTT-06P-056-0350900-00

PATIENT
  Sex: Male

DRUGS (10)
  1. HUMIRA [Suspect]
     Indication: RHEUMATOID ARTHRITIS
     Route: 058
     Dates: start: 20060616, end: 20061020
  2. HUMIRA [Suspect]
     Route: 058
     Dates: start: 20060201, end: 20060616
  3. PREDNISOLONE [Suspect]
     Indication: DRUG USE FOR UNKNOWN INDICATION
     Route: 048
  4. PREDNISOLONE [Suspect]
     Route: 048
  5. METHOTREXATE [Suspect]
     Indication: DRUG USE FOR UNKNOWN INDICATION
     Dates: start: 20051215, end: 20061020
  6. CORTICOSTEROIDS [Concomitant]
     Indication: DRUG USE FOR UNKNOWN INDICATION
     Route: 042
     Dates: start: 20060616, end: 20060616
  7. CORTICOSTEROIDS [Concomitant]
  8. METHOTREXATE [Concomitant]
     Route: 048
  9. LEFLUNOMIDE [Concomitant]
     Indication: DRUG USE FOR UNKNOWN INDICATION
  10. NONSTEROIDAL INFLAMMATORY DRUG [Concomitant]
     Indication: DRUG USE FOR UNKNOWN INDICATION

REACTIONS (5)
  - ASTHENIA [None]
  - HYPERHIDROSIS [None]
  - LEPTOSPIROSIS [None]
  - PNEUMONIA LEGIONELLA [None]
  - RHEUMATOID ARTHRITIS [None]
